FAERS Safety Report 4630055-0 (Version None)
Quarter: 2005Q2

REPORT INFORMATION
  Report Type: 
  Country: None (occurrence: None)
  Receive Date: 20050408
  Receipt Date: 20050329
  Transmission Date: 20051028
  Serious: Yes (Hospitalization)
  Sender: FDA-Public Use
  Company Number: FR-ABBOTT-05P-056-0295449-00

PATIENT
  Age: 78 Year
  Sex: Female
  Weight: 71 kg

DRUGS (6)
  1. LIPANTHYL [Suspect]
     Indication: DRUG USE FOR UNKNOWN INDICATION
     Route: 048
     Dates: end: 20050114
  2. MOLSIDOMINE [Concomitant]
     Indication: DRUG USE FOR UNKNOWN INDICATION
     Dates: end: 20050114
  3. LORAZEPAM [Concomitant]
     Indication: DRUG USE FOR UNKNOWN INDICATION
  4. CELIPROLOL [Concomitant]
     Indication: ESSENTIAL HYPERTENSION
     Dates: end: 20050114
  5. AMLODIPINE BESYLATE [Concomitant]
     Indication: ESSENTIAL HYPERTENSION
     Dates: end: 20050114
  6. CAPOZIDE [Concomitant]
     Indication: ESSENTIAL HYPERTENSION
     Dates: end: 20050114

REACTIONS (2)
  - FALL [None]
  - ORTHOSTATIC HYPOTENSION [None]
